FAERS Safety Report 16479989 (Version 1)
Quarter: 2019Q2

REPORT INFORMATION
  Report Type: Report from Study
  Country: BR (occurrence: BR)
  Receive Date: 20190626
  Receipt Date: 20190626
  Transmission Date: 20190711
  Serious: Yes (Other)
  Sender: FDA-Public Use
  Company Number: PHHY2019BR145128

PATIENT
  Age: 72 Year
  Sex: Female

DRUGS (1)
  1. GALVUS MET [Suspect]
     Active Substance: METFORMIN HYDROCHLORIDE\VILDAGLIPTIN
     Indication: DIABETES MELLITUS
     Dosage: (METFORMIN  850 MG, VILDAGLIPTIN 50 MG)
     Route: 065
     Dates: end: 201903

REACTIONS (11)
  - Feeling abnormal [Unknown]
  - Pain [Not Recovered/Not Resolved]
  - Cataract [Unknown]
  - Chest discomfort [Unknown]
  - Depressed mood [Unknown]
  - Diabetes mellitus [Not Recovered/Not Resolved]
  - Syncope [Unknown]
  - Malaise [Unknown]
  - Blindness [Unknown]
  - Diabetes mellitus inadequate control [Not Recovered/Not Resolved]
  - Type 2 diabetes mellitus [Not Recovered/Not Resolved]

NARRATIVE: CASE EVENT DATE: 201904
